FAERS Safety Report 16012410 (Version 4)
Quarter: 2019Q3

REPORT INFORMATION
  Report Type: Spontaneous
  Country: CA (occurrence: CA)
  Receive Date: 20190227
  Receipt Date: 20190826
  Transmission Date: 20191004
  Serious: Yes (Death, Other)
  Sender: FDA-Public Use
  Company Number: CA-PFIZER INC-2019081357

PATIENT
  Age: 84 Year
  Sex: Male

DRUGS (5)
  1. CEFTRIAXONE SODIUM. [Suspect]
     Active Substance: CEFTRIAXONE SODIUM
     Indication: DEVICE RELATED INFECTION
     Dosage: UNK
  2. CUBICIN [Suspect]
     Active Substance: DAPTOMYCIN
     Indication: ENDOCARDITIS ENTEROCOCCAL
     Dosage: 8 MG/KG, 1X/DAY FOR 6 WEEKS
     Route: 042
  3. VANCOMYCIN [Concomitant]
     Active Substance: VANCOMYCIN
     Dosage: UNK
  4. CEFTRIAXONE SODIUM. [Suspect]
     Active Substance: CEFTRIAXONE SODIUM
     Indication: ENDOCARDITIS ENTEROCOCCAL
     Dosage: 2 G, 2X/DAY
     Route: 042
  5. CUBICIN [Suspect]
     Active Substance: DAPTOMYCIN
     Indication: DEVICE RELATED INFECTION
     Dosage: 8 MG/KG, 1X/DAY PROLONGED TO 9 WEEKS
     Route: 042

REACTIONS (5)
  - Drug resistance [Fatal]
  - Off label use [Unknown]
  - Antimicrobial susceptibility test resistant [Fatal]
  - Treatment failure [Fatal]
  - Product use issue [Unknown]

NARRATIVE: CASE EVENT DATE: 2014
